FAERS Safety Report 6175608-6 (Version None)
Quarter: 2009Q2

REPORT INFORMATION
  Report Type: 
  Country: None (occurrence: None)
  Receive Date: 20090429
  Receipt Date: 20090415
  Transmission Date: 20091009
  Serious: Yes (Other)
  Sender: FDA-Public Use
  Company Number: 1000005942

PATIENT
  Age: 33 Year
  Sex: Male

DRUGS (4)
  1. CITALOPRAM HYDROBROMIDE [Suspect]
     Dosage: ORAL
     Route: 048
  2. MIRTAZAPINE [Suspect]
  3. ALCOHOL [Suspect]
     Dates: start: 20081019, end: 20081019
  4. CINNARIZINE [Concomitant]

REACTIONS (3)
  - AGGRESSION [None]
  - ALCOHOL INTERACTION [None]
  - PHYSICAL ASSAULT [None]
